FAERS Safety Report 8239385-7 (Version None)
Quarter: 2012Q1

REPORT INFORMATION
  Report Type: 
  Country: None (occurrence: None)
  Receive Date: 20120326
  Receipt Date: 20120316
  Transmission Date: 20120608
  Serious: Yes (Other)
  Sender: FDA-Public Use
  Company Number: GER/UKI/12/0023529

PATIENT
  Age: 47 Year
  Sex: Male
  Weight: 119 kg

DRUGS (6)
  1. SIMVASTATIN [Concomitant]
  2. TRAMADOL HCL [Concomitant]
  3. OMEPRAZOLE [Concomitant]
  4. ALBUTEROL SULFATE [Concomitant]
  5. CLOPIDOGREL [Suspect]
     Indication: PRODUCT USED FOR UNKNOWN INDICATION
     Dates: start: 20120309
  6. CLOPIDOGREL [Suspect]
     Indication: PRODUCT USED FOR UNKNOWN INDICATION
     Dates: start: 20111223

REACTIONS (4)
  - WHEEZING [None]
  - COUGH [None]
  - DYSPEPSIA [None]
  - DYSPNOEA [None]
